FAERS Safety Report 19042116 (Version 1)
Quarter: 2021Q1

REPORT INFORMATION
  Report Type: Spontaneous
  Country: IT (occurrence: IT)
  Receive Date: 20210322
  Receipt Date: 20210322
  Transmission Date: 20210420
  Serious: Yes (Hospitalization, Other)
  Sender: FDA-Public Use
  Company Number: IT-TEVA-2021-IT-1883599

PATIENT
  Age: 12 Year
  Sex: Male
  Weight: 50 kg

DRUGS (1)
  1. ISOTRETINOIN. [Suspect]
     Active Substance: ISOTRETINOIN
     Dosage: .2 MG/KG DAILY; FOR AROUND 40 DAYS
     Route: 065
     Dates: start: 201909, end: 201910

REACTIONS (10)
  - Arthralgia [Recovered/Resolved]
  - Acne fulminans [Recovered/Resolved]
  - Hepatic enzyme increased [Recovered/Resolved]
  - Weight decreased [Recovered/Resolved]
  - Malaise [Recovered/Resolved]
  - Leukocytosis [Recovered/Resolved]
  - Pyrexia [Recovered/Resolved]
  - Neutrophilia [Recovered/Resolved]
  - Abdominal pain [Recovered/Resolved]
  - Thrombocytosis [Recovered/Resolved]

NARRATIVE: CASE EVENT DATE: 201909
